FAERS Safety Report 7070327-6 (Version None)
Quarter: 2010Q4

REPORT INFORMATION
  Report Type: 
  Country: None (occurrence: None)
  Receive Date: 20101028
  Receipt Date: 20101025
  Transmission Date: 20110411
  Serious: No
  Sender: FDA-Public Use
  Company Number: US-WYE-H18304410

PATIENT
  Age: 72 Year
  Sex: Female

DRUGS (1)
  1. AMIODARONE [Suspect]
     Dosage: UNKNOWN

REACTIONS (1)
  - ATRIAL FLUTTER [None]
